FAERS Safety Report 9418851 (Version 1)
Quarter: 2013Q3

REPORT INFORMATION
  Report Type: Spontaneous
  Country: SE (occurrence: SE)
  Receive Date: 20130725
  Receipt Date: 20130725
  Transmission Date: 20140515
  Serious: Yes (Other)
  Sender: FDA-Public Use
  Company Number: SE-JNJFOC-20130610556

PATIENT
  Age: 75 Year
  Sex: Female

DRUGS (7)
  1. PEVISONE [Suspect]
     Indication: PRURITUS GENITAL
     Route: 065
     Dates: start: 20130605, end: 20130615
  2. PEVARYL [Suspect]
     Indication: FUNGAL INFECTION
     Dosage: TOTAL OF 3 TABLETS
     Route: 065
  3. PEVARYL [Suspect]
     Indication: FUNGAL INFECTION
     Route: 065
     Dates: start: 20130517
  4. SELOKEN ZOC [Concomitant]
     Dosage: SINCE 3 YEARS
     Route: 065
  5. TROMBYL [Concomitant]
     Dosage: FOR SIX MONTHS
     Route: 065
  6. AMLODIPINE [Concomitant]
     Dosage: FOR ONE YEAR
     Route: 065
  7. CANESTEN [Concomitant]
     Route: 065
     Dates: start: 20130615

REACTIONS (2)
  - Blood glucose increased [Not Recovered/Not Resolved]
  - Drug ineffective [Unknown]
